FAERS Safety Report 21884130 (Version 1)
Quarter: 2023Q1

REPORT INFORMATION
  Report Type: Report from Study
  Country: PK (occurrence: PK)
  Receive Date: 20230119
  Receipt Date: 20230119
  Transmission Date: 20230418
  Serious: Yes (Death)
  Sender: FDA-Public Use
  Company Number: PK-002147023-NVSC2023PK011991

PATIENT
  Sex: Male
  Weight: 80 kg

DRUGS (1)
  1. GLIVEC [Suspect]
     Active Substance: IMATINIB MESYLATE
     Indication: Philadelphia positive chronic myeloid leukaemia
     Dosage: 4 DOSAGE FORM, QD (400 MG)
     Route: 048
     Dates: start: 20220826

REACTIONS (1)
  - Cardiac arrest [Fatal]
